FAERS Safety Report 8926810 (Version 18)
Quarter: 2018Q4

REPORT INFORMATION
  Report Type: Spontaneous
  Country: US (occurrence: US)
  Receive Date: 20121127
  Receipt Date: 20181027
  Transmission Date: 20190205
  Serious: Yes (Other)
  Sender: FDA-Public Use
  Company Number: US-009507513-1211USA009569

PATIENT
  Sex: Female
  Weight: 137.87 kg

DRUGS (3)
  1. ALBUTEROL. [Concomitant]
     Active Substance: ALBUTEROL
     Indication: ASTHMA
     Route: 065
  2. IMPLANON [Suspect]
     Active Substance: ETONOGESTREL
     Indication: CONTRACEPTION
     Dosage: 1 ROD EVERY 3 YEARS, LEFT UPPER ARM
     Route: 059
     Dates: start: 20120606
  3. FOCALIN XR [Concomitant]
     Active Substance: DEXMETHYLPHENIDATE HYDROCHLORIDE
     Indication: ATTENTION DEFICIT/HYPERACTIVITY DISORDER
     Route: 065

REACTIONS (23)
  - Cholecystectomy [Unknown]
  - Hot flush [Unknown]
  - Irritability [Unknown]
  - Anovulatory cycle [Unknown]
  - Device dislocation [Unknown]
  - Fibrocystic breast disease [Unknown]
  - Foreign body [Unknown]
  - Migraine [Unknown]
  - Menstruation irregular [Unknown]
  - Back pain [Unknown]
  - Vulvovaginal dryness [Unknown]
  - Complication associated with device [Not Recovered/Not Resolved]
  - Incorrect product administration duration [Unknown]
  - Infertility [Unknown]
  - Menorrhagia [Unknown]
  - Menorrhagia [Unknown]
  - Crying [Unknown]
  - Complication of device removal [Not Recovered/Not Resolved]
  - Weight increased [Unknown]
  - Abdominal pain upper [Unknown]
  - Dysmenorrhoea [Unknown]
  - Mood swings [Unknown]
  - Night sweats [Unknown]

NARRATIVE: CASE EVENT DATE: 2012
